FAERS Safety Report 7125057-9 (Version None)
Quarter: 2010Q4

REPORT INFORMATION
  Report Type: 
  Country: None (occurrence: None)
  Receive Date: 20101129
  Receipt Date: 20101115
  Transmission Date: 20110411
  Serious: Yes (Hospitalization)
  Sender: FDA-Public Use
  Company Number: ZA-JNJFOC-20101100815

PATIENT
  Age: 13 Year
  Sex: Male

DRUGS (3)
  1. CONCERTA [Suspect]
     Indication: ILL-DEFINED DISORDER
     Route: 048
  2. CONCERTA [Suspect]
     Dosage: FOR 1 MONTH
     Route: 048
  3. MAXOLON [Suspect]
     Indication: NAUSEA
     Route: 065

REACTIONS (2)
  - CHOREOATHETOSIS [None]
  - EXTRAPYRAMIDAL DISORDER [None]
